FAERS Safety Report 17708450 (Version 17)
Quarter: 2022Q3

REPORT INFORMATION
  Report Type: Report from Study
  Country: CL (occurrence: CL)
  Receive Date: 20200426
  Receipt Date: 20220713
  Transmission Date: 20221026
  Serious: Yes (Other)
  Sender: FDA-Public Use
  Company Number: NVSC2020CL075409

PATIENT
  Sex: Male

DRUGS (5)
  1. COSENTYX [Suspect]
     Active Substance: SECUKINUMAB
     Indication: Psoriasis
     Dosage: 300 MG, QMO
     Route: 058
     Dates: start: 20200205
  2. COSENTYX [Suspect]
     Active Substance: SECUKINUMAB
     Dosage: 300 MG, QMO
     Route: 058
     Dates: start: 20200309
  3. COSENTYX [Suspect]
     Active Substance: SECUKINUMAB
     Dosage: 300 MG, QMO
     Route: 058
     Dates: start: 20200409, end: 20200504
  4. COSENTYX [Suspect]
     Active Substance: SECUKINUMAB
     Dosage: 300 MG, QMO
     Route: 058
     Dates: start: 20210928
  5. COSENTYX [Suspect]
     Active Substance: SECUKINUMAB
     Dosage: 300 MG, QMO
     Route: 058
     Dates: end: 202203

REACTIONS (23)
  - Pneumonia [Unknown]
  - Pneumonia [Recovered/Resolved with Sequelae]
  - Pulmonary fibrosis [Recovered/Resolved with Sequelae]
  - Lung disorder [Unknown]
  - Malaise [Unknown]
  - Arthralgia [Not Recovered/Not Resolved]
  - Arthropathy [Not Recovered/Not Resolved]
  - Influenza [Unknown]
  - Pain [Unknown]
  - Illness [Unknown]
  - Disorientation [Unknown]
  - Discomfort [Recovering/Resolving]
  - Hepatic steatosis [Not Recovered/Not Resolved]
  - Cough [Not Recovered/Not Resolved]
  - Feeling abnormal [Unknown]
  - Panic attack [Unknown]
  - Anxiety [Unknown]
  - Pain in extremity [Not Recovered/Not Resolved]
  - Movement disorder [Not Recovered/Not Resolved]
  - Nail disorder [Not Recovered/Not Resolved]
  - Fatigue [Unknown]
  - Psoriasis [Recovering/Resolving]
  - Incorrect dose administered [Not Recovered/Not Resolved]

NARRATIVE: CASE EVENT DATE: 20200101
